FAERS Safety Report 11067546 (Version 1)
Quarter: 2015Q2

REPORT INFORMATION
  Report Type: Spontaneous
  Country: US (occurrence: None)
  Receive Date: 20150424
  Receipt Date: 20150424
  Transmission Date: 20150821
  Serious: No
  Sender: FDA-Public Use
  Company Number: None

PATIENT
  Age: 9 Year
  Sex: Female
  Weight: 13.4 kg

DRUGS (3)
  1. HIZENTRA [Suspect]
     Active Substance: HUMAN IMMUNOGLOBULIN G
     Indication: IMMUNODEFICIENCY COMMON VARIABLE
     Dosage: EVERY 2 WEEKS
     Route: 058
     Dates: start: 20150307, end: 20150321
  2. TEGADERM [Concomitant]
     Active Substance: 2-HYDROXYETHYL METHACRYLATE
  3. TOPICAL LIDOCAINE [Concomitant]
     Active Substance: LIDOCAINE

REACTIONS (1)
  - Infusion site ulcer [None]

NARRATIVE: CASE EVENT DATE: 20150321
